FAERS Safety Report 14767615 (Version 1)
Quarter: 2018Q2

REPORT INFORMATION
  Report Type: Spontaneous
  Country: US (occurrence: US)
  Receive Date: 20180417
  Receipt Date: 20180417
  Transmission Date: 20180711
  Serious: No
  Sender: FDA-Public Use
  Company Number: US-PFIZER INC-2018155253

PATIENT
  Age: 13 Year
  Sex: Female

DRUGS (2)
  1. GENOTROPIN [Suspect]
     Active Substance: SOMATROPIN
     Dosage: 1.5 MG, DAILY
     Dates: start: 20180408, end: 20180409
  2. GENOTROPIN [Suspect]
     Active Substance: SOMATROPIN
     Dosage: 1.8 MG, DAILY
     Dates: start: 20180227, end: 20180319

REACTIONS (5)
  - Chest pain [Unknown]
  - Intentional product misuse [Unknown]
  - Headache [Unknown]
  - Arthralgia [Unknown]
  - Visual impairment [Unknown]

NARRATIVE: CASE EVENT DATE: 20180319
